FAERS Safety Report 4317564-9 (Version None)
Quarter: 2004Q1

REPORT INFORMATION
  Report Type: 
  Country: None (occurrence: None)
  Receive Date: 20040312
  Receipt Date: 20040302
  Transmission Date: 20041129
  Serious: Yes (Hospitalization)
  Sender: FDA-Public Use
  Company Number: FR-JNJFOC-20040203522

PATIENT
  Age: 22 Year
  Sex: Male

DRUGS (8)
  1. SPORANOX [Suspect]
     Indication: CYSTIC FIBROSIS
     Dosage: 300 MG, 1 IN 1 DAY, ORAL
     Route: 048
     Dates: start: 20031001, end: 20040210
  2. ZITHROMAX [Suspect]
     Dosage: 250 MG, 3 IN 1 WEEK, ORAL
     Route: 048
     Dates: end: 20040210
  3. CREON [Concomitant]
  4. URSOLVAN (URSODEOXYCHOLIC ACID) [Concomitant]
  5. TOCO 500 (TOCOPHERYL ACETATE) [Concomitant]
  6. CARENCYL (CARENCYL) [Concomitant]
  7. FERO-GRAD (FERROUS SULFATE) [Concomitant]
  8. TARGOCID [Concomitant]

REACTIONS (3)
  - PERICARDIAL EFFUSION [None]
  - PERICARDITIS [None]
  - RESPIRATORY FAILURE [None]
